FAERS Safety Report 7498878 (Version 6)
Quarter: 2015Q3

REPORT INFORMATION
  Report Type: Spontaneous
  Country: US (occurrence: US)
  Receive Date: 20100723
  Receipt Date: 20150811
  Transmission Date: 20151125
  Serious: Yes (Death, Other)
  Sender: FDA-Public Use
  Company Number: US-JNJFOC-20100704564

PATIENT
  Age: 4 Year
  Sex: Male
  Weight: 16.33 kg

DRUGS (3)
  1. CONCENTRATED TYLENOL INFANTS [Suspect]
     Active Substance: ACETAMINOPHEN
     Indication: MYALGIA
     Route: 048
     Dates: start: 20091102, end: 20091102
  2. CONCENTRATED TYLENOL INFANTS [Suspect]
     Active Substance: ACETAMINOPHEN
     Indication: PYREXIA
     Route: 048
     Dates: start: 20091102, end: 20091102
  3. PREDNISONE. [Concomitant]
     Active Substance: PREDNISONE
     Indication: DUCHENNE MUSCULAR DYSTROPHY
     Route: 048
     Dates: start: 200804

REACTIONS (8)
  - Cardiac arrest [Fatal]
  - Eye movement disorder [None]
  - Respiratory arrest [Fatal]
  - Epistaxis [Fatal]
  - Unresponsive to stimuli [Fatal]
  - Sudden death [None]
  - Product quality issue [Unknown]
  - Mouth haemorrhage [Fatal]

NARRATIVE: CASE EVENT DATE: 20091102
